FAERS Safety Report 23571129 (Version 2)
Quarter: 2024Q1

REPORT INFORMATION
  Report Type: Spontaneous
  Country: RO (occurrence: RO)
  Receive Date: 20240227
  Receipt Date: 20240317
  Transmission Date: 20240410
  Serious: Yes (Death, Other)
  Sender: FDA-Public Use
  Company Number: RO-BAYER-2024A029517

PATIENT
  Age: 94 Year
  Sex: Female

DRUGS (4)
  1. XARELTO [Suspect]
     Active Substance: RIVAROXABAN
     Indication: Atrial fibrillation
     Dosage: 15 MG
     Route: 048
     Dates: start: 2017
  2. METOPROLOL SUCCINATE [Concomitant]
     Active Substance: METOPROLOL SUCCINATE
  3. PERINDOPRIL [Concomitant]
     Active Substance: PERINDOPRIL
  4. SIMVASTATIN [Concomitant]
     Active Substance: SIMVASTATIN

REACTIONS (5)
  - Cardio-respiratory arrest [Fatal]
  - Breast haemorrhage [Unknown]
  - Anaemia [Unknown]
  - Decreased appetite [Unknown]
  - Dysphagia [Unknown]
